FAERS Safety Report 13705004 (Version 1)
Quarter: 2017Q2

REPORT INFORMATION
  Report Type: Spontaneous
  Country: US (occurrence: US)
  Receive Date: 20170629
  Receipt Date: 20170629
  Transmission Date: 20170830
  Serious: No
  Sender: FDA-Public Use
  Company Number: None

PATIENT
  Age: 30 Year
  Sex: Male
  Weight: 68.4 kg

DRUGS (5)
  1. CIPROFLOXACIN. [Suspect]
     Active Substance: CIPROFLOXACIN
     Indication: EPIDIDYMITIS
     Dosage: ?          QUANTITY:42 CAPSULE(S);?
     Route: 048
     Dates: start: 20170620, end: 20170623
  2. MULTIVITAMINS [Concomitant]
     Active Substance: VITAMINS
  3. VITAMIN D [Concomitant]
     Active Substance: CHOLECALCIFEROL
  4. CIPROFLOXACIN. [Suspect]
     Active Substance: CIPROFLOXACIN
     Indication: ORCHITIS
     Dosage: ?          QUANTITY:42 CAPSULE(S);?
     Route: 048
     Dates: start: 20170620, end: 20170623
  5. DOXYCYCLINE. [Concomitant]
     Active Substance: DOXYCYCLINE

REACTIONS (3)
  - Therapy cessation [None]
  - Tendon pain [None]
  - Arthralgia [None]

NARRATIVE: CASE EVENT DATE: 20170623
